FAERS Safety Report 5986369-5 (Version None)
Quarter: 2008Q4

REPORT INFORMATION
  Report Type: 
  Country: None (occurrence: None)
  Receive Date: 20081209
  Receipt Date: 20080407
  Transmission Date: 20090506
  Serious: No
  Sender: FDA-Public Use
  Company Number: PR-AMGEN-KDL273376

PATIENT
  Sex: Female

DRUGS (1)
  1. ENBREL [Suspect]
     Indication: RHEUMATOID ARTHRITIS
     Route: 058
     Dates: start: 20050101

REACTIONS (5)
  - DIZZINESS POSTURAL [None]
  - INJECTION SITE PAIN [None]
  - LOCALISED INFECTION [None]
  - TONSILLAR HYPERTROPHY [None]
  - UPPER RESPIRATORY TRACT INFECTION [None]
